FAERS Safety Report 8121843-7 (Version None)
Quarter: 2012Q1

REPORT INFORMATION
  Report Type: 
  Country: None (occurrence: None)
  Receive Date: 20120208
  Receipt Date: 20120203
  Transmission Date: 20120608
  Serious: Yes (Other)
  Sender: FDA-Public Use
  Company Number: US-PFIZER INC-2012030905

PATIENT
  Sex: Female
  Weight: 74.83 kg

DRUGS (3)
  1. ROXICODONE [Concomitant]
     Dosage: 15 MG, 2X/DAY
  2. LYRICA [Suspect]
     Dosage: 250 MG, 3X/DAY
     Dates: end: 20120101
  3. LYRICA [Suspect]
     Indication: FIBROMYALGIA
     Dosage: EITHER 50MG OR 75MG

REACTIONS (2)
  - MACULAR DEGENERATION [None]
  - VISION BLURRED [None]
